FAERS Safety Report 9829983 (Version 1)
Quarter: 2014Q1

REPORT INFORMATION
  Report Type: Spontaneous
  Country: TR (occurrence: TR)
  Receive Date: 20140120
  Receipt Date: 20140120
  Transmission Date: 20141002
  Serious: Yes (Hospitalization, Other)
  Sender: FDA-Public Use
  Company Number: TR-ELI_LILLY_AND_COMPANY-TR201401005775

PATIENT
  Age: 20 Year
  Sex: Female

DRUGS (2)
  1. OLANZAPINE [Suspect]
     Indication: ACUTE PSYCHOSIS
     Dosage: 10 MG, QD
  2. SERTRALINE [Interacting]
     Indication: ACUTE PSYCHOSIS
     Dosage: 50 MG, OTHER

REACTIONS (3)
  - Major depression [Unknown]
  - Oedema peripheral [Recovered/Resolved]
  - Drug interaction [Recovered/Resolved]
